FAERS Safety Report 15407958 (Version 1)
Quarter: 2018Q3

REPORT INFORMATION
  Report Type: Spontaneous
  Country: US (occurrence: US)
  Receive Date: 20180920
  Receipt Date: 20180920
  Transmission Date: 20181010
  Serious: Yes (Death, Other)
  Sender: FDA-Public Use
  Company Number: US-JNJFOC-20180909477

PATIENT
  Age: 84 Year

DRUGS (1)
  1. XARELTO [Suspect]
     Active Substance: RIVAROXABAN
     Indication: PRODUCT USED FOR UNKNOWN INDICATION
     Route: 048
     Dates: start: 20141121, end: 20160812

REACTIONS (3)
  - Haemorrhage intracranial [Unknown]
  - Death [Fatal]
  - Haematoma [Unknown]

NARRATIVE: CASE EVENT DATE: 20141203
